FAERS Safety Report 23842889 (Version 2)
Quarter: 2024Q2

REPORT INFORMATION
  Report Type: Spontaneous
  Country: AT (occurrence: AT)
  Receive Date: 20240510
  Receipt Date: 20240515
  Transmission Date: 20240716
  Serious: Yes (Other)
  Sender: FDA-Public Use
  Company Number: AT-ABBVIE-5736745

PATIENT
  Age: 38 Year
  Sex: Male
  Weight: 59 kg

DRUGS (7)
  1. ADALIMUMAB [Suspect]
     Active Substance: ADALIMUMAB\ISOPROPYL ALCOHOL
     Indication: Crohn^s disease
     Dosage: UNK
     Route: 058
     Dates: start: 2014, end: 202007
  2. SKYRIZI [Suspect]
     Active Substance: RISANKIZUMAB-RZAA
     Indication: Crohn^s disease
     Dosage: 600 MILLIGRAM
     Route: 040
     Dates: start: 202310
  3. SKYRIZI [Suspect]
     Active Substance: RISANKIZUMAB-RZAA
     Dosage: UNK MILLIGRAM
     Route: 040
     Dates: start: 202311
  4. SKYRIZI [Suspect]
     Active Substance: RISANKIZUMAB-RZAA
     Dosage: 360 MILLIGRAM
     Route: 058
     Dates: start: 202401
  5. SKYRIZI [Suspect]
     Active Substance: RISANKIZUMAB-RZAA
     Dosage: 360 MILLIGRAM, Q8WK
     Route: 058
     Dates: start: 202404
  6. SKYRIZI [Suspect]
     Active Substance: RISANKIZUMAB-RZAA
     Dosage: 600 MILLIGRAM
     Route: 040
     Dates: start: 202312
  7. FERRIC DERISOMALTOSE [Concomitant]
     Active Substance: FERRIC DERISOMALTOSE
     Indication: Product used for unknown indication
     Dosage: UNK (IRON(III))

REACTIONS (24)
  - Oesophageal ulcer [Unknown]
  - Colitis [Unknown]
  - Anal abscess [Unknown]
  - Crohn^s disease [Unknown]
  - Gastritis erosive [Unknown]
  - Anal fistula [Unknown]
  - Abdominal pain [Unknown]
  - Therapeutic product effect decreased [Unknown]
  - Iron deficiency [Unknown]
  - Anal fistula [Unknown]
  - Defaecation urgency [Unknown]
  - Frequent bowel movements [Unknown]
  - Soft tissue inflammation [Unknown]
  - Mesenteric lymphadenitis [Unknown]
  - Granuloma [Unknown]
  - Thrombocytosis [Unknown]
  - Scar [Unknown]
  - Duodenitis [Unknown]
  - Iron deficiency anaemia [Recovered/Resolved]
  - Enteritis [Unknown]
  - Diarrhoea [Unknown]
  - Inflammation [Unknown]
  - Gastrointestinal wall thickening [Unknown]
  - Intestinal villi atrophy [Unknown]

NARRATIVE: CASE EVENT DATE: 20210801
